FAERS Safety Report 10412110 (Version 2)
Quarter: 2014Q3

REPORT INFORMATION
  Report Type: Other
  Country: IT (occurrence: IT)
  Receive Date: 20140827
  Receipt Date: 20140827
  Transmission Date: 20150326
  Serious: Yes (Other)
  Sender: FDA-Public Use
  Company Number: IT-SUN PHARMACEUTICAL INDUSTRIES LTD-2014SUN01826

PATIENT

DRUGS (4)
  1. CAPECITABINE [Suspect]
     Active Substance: CAPECITABINE
     Indication: COLORECTAL ADENOCARCINOMA
     Dosage: 43200 MG, CYCLIC
     Route: 042
     Dates: start: 20130927, end: 20140124
  2. CAPECITABINE [Suspect]
     Active Substance: CAPECITABINE
     Dosage: DOSE REDUCED TO 30%
     Route: 042
  3. OXALIPLATIN. [Suspect]
     Active Substance: OXALIPLATIN
     Indication: COLORECTAL ADENOCARCINOMA
     Dosage: 200 MG, CYCLIC
     Route: 042
     Dates: start: 20130927, end: 20140124
  4. OXALIPLATIN. [Suspect]
     Active Substance: OXALIPLATIN
     Dosage: DOSE REDUCED TO 25%
     Route: 042

REACTIONS (3)
  - Skin toxicity [Unknown]
  - Asthenia [Unknown]
  - Neurotoxicity [Unknown]

NARRATIVE: CASE EVENT DATE: 20131128
